FAERS Safety Report 4892320-1 (Version None)
Quarter: 2006Q1

REPORT INFORMATION
  Report Type: 
  Country: None (occurrence: None)
  Receive Date: 20060126
  Receipt Date: 20050805
  Transmission Date: 20060701
  Serious: Yes (Disabling, Other)
  Sender: FDA-Public Use
  Company Number: US-GLAXOSMITHKLINE-A0569127A

PATIENT
  Sex: Female
  Weight: 120.5 kg

DRUGS (19)
  1. PAXIL [Suspect]
     Indication: DEPRESSION
     Dosage: 60MG PER DAY
     Route: 048
  2. PAXIL CR [Suspect]
     Indication: DEPRESSION
     Dosage: 75MG PER DAY
     Route: 048
  3. ATIVAN [Concomitant]
     Indication: ANXIETY
     Dosage: 2MG FOUR TIMES PER DAY
     Route: 048
  4. SYNTHROID [Concomitant]
     Indication: HYPOTHYROIDISM
     Dosage: .0125MG PER DAY
     Route: 048
  5. LANTUS [Concomitant]
     Dosage: 22UNIT AT NIGHT
     Route: 058
  6. HUMULIN 70/30 [Concomitant]
     Dosage: 60UNIT PER DAY
     Route: 058
  7. OXYBUTYNIN [Concomitant]
     Indication: BLADDER SPASM
     Dosage: 5MG AS REQUIRED
     Route: 048
  8. PHENERGAN [Concomitant]
     Indication: NAUSEA
     Dosage: 25MG AS REQUIRED
     Route: 048
  9. BENTYL [Concomitant]
     Indication: IRRITABLE BOWEL SYNDROME
     Route: 048
  10. ALBUTEROL SULFATE AUTOHALER [Concomitant]
     Indication: ASTHMA
  11. SINGULAIR [Concomitant]
     Indication: ASTHMA
     Dosage: 10MG AT NIGHT
     Route: 048
  12. ALLEGRA [Concomitant]
     Indication: MULTIPLE ALLERGIES
     Dosage: 180MG PER DAY
     Route: 048
  13. IBUPROFEN [Concomitant]
     Indication: PAIN
     Route: 048
  14. ORTHO TRI-CYCLEN [Concomitant]
     Route: 048
  15. ZESTRIL [Concomitant]
     Dosage: 5MG PER DAY
     Route: 048
  16. COMBIVENT [Concomitant]
     Indication: ASTHMA
  17. FLEXERIL [Concomitant]
     Route: 048
  18. RHINOCORT [Concomitant]
     Indication: CHRONIC SINUSITIS
     Route: 045
  19. UNKNOWN MEDICATION [Concomitant]
     Indication: BLADDER SPASM

REACTIONS (12)
  - AGITATION [None]
  - CONDITION AGGRAVATED [None]
  - CONVERSION DISORDER [None]
  - CRYING [None]
  - DEPRESSION [None]
  - DEREALISATION [None]
  - DISSOCIATION [None]
  - FEELING OF DESPAIR [None]
  - HAIR COLOUR CHANGES [None]
  - HYPOAESTHESIA [None]
  - PRESCRIBED OVERDOSE [None]
  - SLEEP APNOEA SYNDROME [None]
